FAERS Safety Report 10759300 (Version 2)
Quarter: 2015Q2

REPORT INFORMATION
  Report Type: Report from Study
  Country: DE (occurrence: DE)
  Receive Date: 20150203
  Receipt Date: 20150416
  Transmission Date: 20150821
  Serious: Yes (Hospitalization, Other)
  Sender: FDA-Public Use
  Company Number: DE-ABBVIE-14P-062-1322214-00

PATIENT
  Sex: Male

DRUGS (3)
  1. DUODOPA [Suspect]
     Active Substance: CARBIDOPA\LEVODOPA
     Dosage: MD: 3.0 ML; CRD:3.4 ML/H; CRN: 1.0 ML/H; ED:0.8 ML
     Route: 050
     Dates: start: 20141210
  2. ZYTIGA [Concomitant]
     Active Substance: ABIRATERONE ACETATE
     Indication: PRODUCT USED FOR UNKNOWN INDICATION
     Dates: start: 201501
  3. DUODOPA [Suspect]
     Active Substance: CARBIDOPA\LEVODOPA
     Indication: PARKINSON^S DISEASE
     Dosage: MD 3.0ML,CRD 1.7ML/H,CRN 0.5ML/H,ED 0.8ML
     Route: 050
     Dates: start: 20141203

REACTIONS (3)
  - Metastases to abdominal cavity [Recovered/Resolved]
  - Abdominal tenderness [Not Recovered/Not Resolved]
  - Parkinson^s disease [Recovered/Resolved]
